FAERS Safety Report 13024286 (Version 5)
Quarter: 2018Q3

REPORT INFORMATION
  Report Type: Report from Study
  Country: US (occurrence: US)
  Receive Date: 20161213
  Receipt Date: 20180809
  Transmission Date: 20181010
  Serious: No
  Sender: FDA-Public Use
  Company Number: GXBR2016US003394

PATIENT
  Sex: Female

DRUGS (2)
  1. OMNITROPE [Suspect]
     Active Substance: SOMATROPIN
     Dosage: 0.1 MG, QD
     Route: 058
  2. OMNITROPE [Suspect]
     Active Substance: SOMATROPIN
     Indication: PRADER-WILLI SYNDROME
     Dosage: 0.75 MG, QD
     Route: 058
     Dates: start: 201007

REACTIONS (2)
  - Device issue [Unknown]
  - Incorrect dose administered by device [Not Recovered/Not Resolved]
